FAERS Safety Report 6756323-4 (Version None)
Quarter: 2010Q2

REPORT INFORMATION
  Report Type: 
  Country: None (occurrence: None)
  Receive Date: 20100604
  Receipt Date: 20100601
  Transmission Date: 20101027
  Serious: Yes (Life-Threatening)
  Sender: FDA-Public Use
  Company Number: IT-ROCHE-706778

PATIENT
  Sex: Female

DRUGS (1)
  1. HERCEPTIN [Suspect]
     Indication: BREAST CANCER
     Dosage: FREQUENCY: CYCLIC
     Route: 042
     Dates: start: 20100409, end: 20100520

REACTIONS (4)
  - BACK PAIN [None]
  - BRONCHOSPASM [None]
  - CYANOSIS [None]
  - TREMOR [None]
